FAERS Safety Report 6366784-0 (Version None)
Quarter: 2009Q3

REPORT INFORMATION
  Report Type: 
  Country: None (occurrence: None)
  Receive Date: 20090921
  Receipt Date: 20090910
  Transmission Date: 20100115
  Serious: Yes (Death, Hospitalization)
  Sender: FDA-Public Use
  Company Number: ES-ROCHE-611528

PATIENT
  Sex: Female

DRUGS (2)
  1. XELODA [Suspect]
     Dosage: DISCONTINUED. FREQUENCY: 24 HOURS DURING 7 DAYS.
     Route: 048
     Dates: start: 20081223, end: 20081230
  2. CARBOPLATIN [Concomitant]
     Route: 042
     Dates: start: 20081223, end: 20081223

REACTIONS (1)
  - DRUG TOXICITY [None]
